FAERS Safety Report 10202980 (Version 1)
Quarter: 2014Q2

REPORT INFORMATION
  Report Type: Report from Study
  Country: BR (occurrence: BR)
  Receive Date: 20140528
  Receipt Date: 20140528
  Transmission Date: 20141212
  Serious: Yes (Hospitalization, Other)
  Sender: FDA-Public Use
  Company Number: PHHY2014BR062816

PATIENT
  Age: 80 Year
  Sex: Female
  Weight: 70 kg

DRUGS (8)
  1. EXELON [Suspect]
     Indication: DEMENTIA ALZHEIMER^S TYPE
     Dosage: (USED ONLY 2 DOSES)
     Route: 048
  2. EXELON PATCH [Suspect]
     Indication: DEMENTIA ALZHEIMER^S TYPE
     Dosage: 4.6 MG/24 HRS (9MG/5CM2 (28 PATCHS))
     Route: 062
  3. EXELON PATCH [Suspect]
     Dosage: 9.5 MG/ 24 HRS (18MG/10CM2)
     Route: 062
  4. EXELON PATCH [Suspect]
     Dosage: 9.5 MG/24 HRS (18MG/10CM2)
     Route: 062
  5. SUSTRATE [Concomitant]
     Indication: CHEST PAIN
     Dosage: UNK UKN, UNK
     Route: 060
  6. ARADOIS [Concomitant]
     Indication: BLOOD PRESSURE MANAGEMENT
     Dosage: UNK UKN, UNK
  7. PASALIX [Concomitant]
     Indication: SEDATION
     Dosage: 100 MG, DAILY (3DOSE)
  8. AAS [Concomitant]
     Indication: ANTICOAGULANT THERAPY
     Dosage: 100 MG, QD

REACTIONS (4)
  - Myocardial infarction [Not Recovered/Not Resolved]
  - Infarction [Not Recovered/Not Resolved]
  - Feeling abnormal [Not Recovered/Not Resolved]
  - Mood altered [Not Recovered/Not Resolved]
